FAERS Safety Report 6006661-8 (Version None)
Quarter: 2008Q4

REPORT INFORMATION
  Report Type: 
  Country: None (occurrence: None)
  Receive Date: 20081217
  Receipt Date: 20081208
  Transmission Date: 20090506
  Serious: Yes (Other)
  Sender: FDA-Public Use
  Company Number: FR-ELI_LILLY_AND_COMPANY-FR200810002860

PATIENT
  Age: 53 Year
  Sex: Female
  Weight: 49 kg

DRUGS (6)
  1. ALIMTA [Suspect]
     Indication: LUNG NEOPLASM MALIGNANT
     Dosage: 500 MG/M2, EVERY THREE WEEKS
     Route: 042
     Dates: start: 20080421
  2. ALIMTA [Suspect]
  3. FOLIC ACID [Concomitant]
     Indication: VITAMIN SUPPLEMENTATION
     Dosage: 0.4 MG, DAILY (1/D)
     Route: 048
  4. VITAMIN B-12 [Concomitant]
     Indication: VITAMIN SUPPLEMENTATION
     Route: 030
  5. CORTICOSTEROID NOS [Concomitant]
     Indication: PROPHYLAXIS
  6. SOLUPRED [Concomitant]
     Indication: PROPHYLAXIS

REACTIONS (2)
  - CREATININE RENAL CLEARANCE DECREASED [None]
  - LIVER INJURY [None]
